FAERS Safety Report 7611617-5 (Version None)
Quarter: 2011Q3

REPORT INFORMATION
  Report Type: 
  Country: None (occurrence: None)
  Receive Date: 20110715
  Receipt Date: 20110706
  Transmission Date: 20111222
  Serious: Yes (Death)
  Sender: FDA-Public Use
  Company Number: TR-ACTELION-A-CH2011-51212

PATIENT
  Sex: Male
  Weight: 12 kg

DRUGS (3)
  1. SILDENAFIL CITRATE [Concomitant]
  2. TRACLEER [Suspect]
     Indication: PULMONARY ARTERIAL HYPERTENSION
     Dosage: UNK , BID
     Route: 048
  3. VENTAVIS [Concomitant]
     Indication: PULMONARY ARTERIAL HYPERTENSION

REACTIONS (3)
  - PULMONARY ARTERIAL HYPERTENSION [None]
  - BRONCHOSCOPY [None]
  - DISEASE PROGRESSION [None]
